FAERS Safety Report 16257865 (Version 3)
Quarter: 2019Q3

REPORT INFORMATION
  Report Type: Report from Study
  Country: UA (occurrence: UA)
  Receive Date: 20190430
  Receipt Date: 20190830
  Transmission Date: 20191004
  Serious: Yes (Death)
  Sender: FDA-Public Use
  Company Number: UA-SEATTLE GENETICS-2019SGN01310

PATIENT
  Age: 54 Year
  Sex: Male

DRUGS (1)
  1. ADCETRIS [Suspect]
     Active Substance: BRENTUXIMAB VEDOTIN
     Indication: HODGKIN^S DISEASE
     Dosage: UNK
     Route: 042
     Dates: start: 20190321, end: 20190410

REACTIONS (1)
  - Death [Fatal]

NARRATIVE: CASE EVENT DATE: 20190421
